FAERS Safety Report 6005473-9 (Version None)
Quarter: 2008Q4

REPORT INFORMATION
  Report Type: 
  Country: None (occurrence: None)
  Receive Date: 20081217
  Receipt Date: 20081209
  Transmission Date: 20090506
  Serious: Yes (Life-Threatening, Hospitalization)
  Sender: FDA-Public Use
  Company Number: JP-JNJFOC-20081103657

PATIENT
  Sex: Female
  Weight: 60 kg

DRUGS (31)
  1. REMICADE [Suspect]
     Route: 042
  2. REMICADE [Suspect]
     Route: 042
  3. REMICADE [Suspect]
     Route: 042
  4. REMICADE [Suspect]
     Route: 042
  5. REMICADE [Suspect]
     Route: 042
  6. REMICADE [Suspect]
     Route: 042
  7. REMICADE [Suspect]
     Route: 042
  8. REMICADE [Suspect]
     Route: 042
  9. REMICADE [Suspect]
     Route: 042
  10. REMICADE [Suspect]
     Route: 042
  11. REMICADE [Suspect]
     Route: 042
  12. REMICADE [Suspect]
     Route: 042
  13. REMICADE [Suspect]
     Route: 042
  14. REMICADE [Suspect]
     Route: 042
  15. REMICADE [Suspect]
     Route: 042
  16. REMICADE [Suspect]
     Route: 042
  17. REMICADE [Suspect]
     Route: 042
  18. REMICADE [Suspect]
     Route: 042
  19. REMICADE [Suspect]
     Route: 042
  20. REMICADE [Suspect]
     Route: 042
  21. REMICADE [Suspect]
     Route: 042
  22. REMICADE [Suspect]
     Route: 042
  23. REMICADE [Suspect]
     Indication: RHEUMATOID ARTHRITIS
     Route: 042
  24. PREDONINE [Suspect]
     Route: 048
  25. PREDONINE [Suspect]
     Route: 048
  26. PREDONINE [Suspect]
     Indication: DRUG USE FOR UNKNOWN INDICATION
     Route: 048
  27. RHEUMATREX [Suspect]
     Indication: RHEUMATOID ARTHRITIS
     Route: 048
  28. TRYPTANOL [Concomitant]
     Route: 048
  29. DEPAS [Concomitant]
     Route: 048
  30. LIPITOR [Concomitant]
     Route: 048
  31. STEROID [Concomitant]

REACTIONS (9)
  - ABSCESS [None]
  - BRAIN ABSCESS [None]
  - DISSEMINATED INTRAVASCULAR COAGULATION [None]
  - FINGER REPAIR OPERATION [None]
  - HERPES ZOSTER [None]
  - HISTIOCYTOSIS HAEMATOPHAGIC [None]
  - JOINT ARTHROPLASTY [None]
  - NAIL OPERATION [None]
  - OSTEOTOMY [None]
